FAERS Safety Report 25889871 (Version 1)
Quarter: 2025Q4

REPORT INFORMATION
  Report Type: Spontaneous
  Country: EU (occurrence: EU)
  Receive Date: 20251007
  Receipt Date: 20251007
  Transmission Date: 20260118
  Serious: Yes (Other)
  Sender: IPCA
  Company Number: None

PATIENT

DRUGS (9)
  1. METOCLOPRAMIDE [Suspect]
     Active Substance: METOCLOPRAMIDE
     Indication: Acute respiratory distress syndrome
     Dosage: 10 MILLIGRAM, QD
     Route: 042
     Dates: end: 20200417
  2. PANTOPRAZOLE [Suspect]
     Active Substance: PANTOPRAZOLE
     Indication: Acute respiratory distress syndrome
     Dosage: 40 MILLIGRAM, QD
     Route: 042
     Dates: end: 20200423
  3. SUFENTANIL [Suspect]
     Active Substance: SUFENTANIL
     Indication: Acute respiratory distress syndrome
     Dosage: 50-100 ?G/H
     Route: 042
     Dates: start: 20200319, end: 20200423
  4. ENOXAPARIN [Suspect]
     Active Substance: ENOXAPARIN
     Indication: Acute respiratory distress syndrome
     Dosage: 40 MILLIGRAM, QD
     Route: 058
     Dates: end: 20200423
  5. POLYETHYLENE GLYCOLS [Suspect]
     Active Substance: POLYETHYLENE GLYCOLS
     Indication: Acute respiratory distress syndrome
     Dosage: 13 GRAM, QD
     Route: 049
     Dates: end: 20200423
  6. NOREPINEPHRINE [Suspect]
     Active Substance: NOREPINEPHRINE
     Indication: Acute respiratory distress syndrome
     Dosage: 50-300 ?G/H
     Route: 042
     Dates: end: 20200421
  7. PROPOFOL [Suspect]
     Active Substance: PROPOFOL
     Indication: Acute respiratory distress syndrome
     Dosage: 60-240 MG/H
     Route: 042
     Dates: start: 20200319, end: 20200404
  8. REMDESIVIR [Suspect]
     Active Substance: REMDESIVIR
     Indication: Acute respiratory distress syndrome
     Dosage: 200 MILLIGRAM, QD
     Route: 042
     Dates: start: 20200326, end: 20200326
  9. REMDESIVIR [Suspect]
     Active Substance: REMDESIVIR
     Indication: COVID-19
     Dosage: 100 MILLIGRAM, QD
     Route: 042
     Dates: start: 20200327, end: 20200329

REACTIONS (1)
  - Symmetrical drug-related intertriginous and flexural exanthema [Recovered/Resolved]

NARRATIVE: CASE EVENT DATE: 20200330
